FAERS Safety Report 7934514-4 (Version None)
Quarter: 2011Q4

REPORT INFORMATION
  Report Type: 
  Country: None (occurrence: None)
  Receive Date: 20111122
  Receipt Date: 20111115
  Transmission Date: 20120403
  Serious: Yes (Hospitalization)
  Sender: FDA-Public Use
  Company Number: IT-JNJFOC-20111004061

PATIENT
  Sex: Female
  Weight: 70 kg

DRUGS (6)
  1. BISOPROLOL FUMARATE [Concomitant]
     Indication: ARRHYTHMIA
  2. PALIPERIDONE [Suspect]
     Route: 030
     Dates: start: 20110726
  3. PALIPERIDONE [Suspect]
     Indication: SCHIZOPHRENIA
     Route: 030
     Dates: start: 20110620
  4. PALIPERIDONE [Suspect]
     Route: 030
     Dates: start: 20110926
  5. PALIPERIDONE [Suspect]
     Route: 030
     Dates: start: 20110627
  6. PALIPERIDONE [Suspect]
     Route: 030
     Dates: start: 20110826

REACTIONS (2)
  - ANXIETY [None]
  - INSOMNIA [None]
